FAERS Safety Report 4450709-9 (Version None)
Quarter: 2004Q3

REPORT INFORMATION
  Report Type: 
  Country: None (occurrence: None)
  Receive Date: 20040914
  Receipt Date: 20040914
  Transmission Date: 20050211
  Serious: Yes (Death)
  Sender: FDA-Public Use
  Company Number: None

PATIENT
  Age: 71 Year
  Sex: Female
  Weight: 50.6 kg

DRUGS (8)
  1. IRESSA [Suspect]
     Indication: PANCREATIC CARCINOMA METASTATIC
     Dosage: 500MG QD ORAL
     Route: 048
     Dates: start: 20040831, end: 20040912
  2. OXYCODONE HCL [Concomitant]
  3. PANCREASE [Concomitant]
  4. PRILOSEC [Concomitant]
  5. DUCOLAX [Concomitant]
  6. MILK OF MAGNESIA TAB [Concomitant]
  7. MIRALAX [Concomitant]
  8. CITRACEL [Concomitant]

REACTIONS (4)
  - ABDOMINAL PAIN [None]
  - CONSTIPATION [None]
  - ERYTHEMA [None]
  - PAIN [None]
